FAERS Safety Report 9246089 (Version 2)
Quarter: 2018Q2

REPORT INFORMATION
  Report Type: Report from Study
  Country: ZA (occurrence: ZA)
  Receive Date: 20130422
  Receipt Date: 20180608
  Transmission Date: 20180711
  Serious: Yes (Death, Hospitalization)
  Sender: FDA-Public Use
  Company Number: ZA-ROCHE-1216412

PATIENT
  Age: 46 Year
  Sex: Female

DRUGS (9)
  1. EPOETIN BETA [Suspect]
     Active Substance: ERYTHROPOIETIN
     Route: 058
     Dates: start: 20090323
  2. EPOETIN BETA [Suspect]
     Active Substance: ERYTHROPOIETIN
     Route: 058
     Dates: start: 20121019
  3. EPOETIN BETA [Suspect]
     Active Substance: ERYTHROPOIETIN
     Route: 058
     Dates: start: 20070621
  4. MIRCERA [Suspect]
     Active Substance: METHOXY POLYETHYLENE GLYCOL-EPOETIN BETA
     Route: 065
     Dates: start: 20100212
  5. EPOETIN BETA [Suspect]
     Active Substance: ERYTHROPOIETIN
     Route: 058
     Dates: start: 20081121
  6. MIRCERA [Suspect]
     Active Substance: METHOXY POLYETHYLENE GLYCOL-EPOETIN BETA
     Indication: NEPHROGENIC ANAEMIA
     Route: 065
     Dates: start: 20091008
  7. VENOFER [Concomitant]
     Active Substance: IRON SUCROSE
     Route: 065
  8. EPOETIN BETA [Suspect]
     Active Substance: ERYTHROPOIETIN
     Indication: NEPHROGENIC ANAEMIA
     Route: 058
     Dates: start: 20070509
  9. MIRCERA [Suspect]
     Active Substance: METHOXY POLYETHYLENE GLYCOL-EPOETIN BETA
     Route: 065
     Dates: start: 201102

REACTIONS (6)
  - Fluid overload [Unknown]
  - Haemorrhage [Unknown]
  - Influenza [Unknown]
  - Death [Fatal]
  - Skin reaction [Unknown]
  - Malaise [Unknown]

NARRATIVE: CASE EVENT DATE: 20070618
